FAERS Safety Report 5764930-0 (Version None)
Quarter: 2008Q2

REPORT INFORMATION
  Report Type: 
  Country: None (occurrence: None)
  Receive Date: 20080611
  Receipt Date: 20080530
  Transmission Date: 20081010
  Serious: Yes (Hospitalization)
  Sender: FDA-Public Use
  Company Number: A0732032A

PATIENT
  Sex: Male

DRUGS (1)
  1. LAMICTAL [Suspect]
     Indication: BIPOLAR DISORDER
     Route: 048
     Dates: start: 20080201

REACTIONS (26)
  - ANOREXIA [None]
  - ATAXIA [None]
  - BLINDNESS TRANSIENT [None]
  - CARDIAC ARREST [None]
  - CONVULSION [None]
  - DIARRHOEA [None]
  - DIZZINESS [None]
  - FAECAL INCONTINENCE [None]
  - HEADACHE [None]
  - HEART RATE DECREASED [None]
  - HYPERSENSITIVITY [None]
  - HYPOAESTHESIA [None]
  - HYPOVENTILATION [None]
  - LOSS OF CONSCIOUSNESS [None]
  - NAUSEA [None]
  - PANCREATITIS [None]
  - PRURITUS [None]
  - RASH GENERALISED [None]
  - RESPIRATORY ARREST [None]
  - RHABDOMYOLYSIS [None]
  - SENSORY LOSS [None]
  - SKIN DISCOLOURATION [None]
  - SKIN ULCER [None]
  - THROMBOSIS [None]
  - UNRESPONSIVE TO STIMULI [None]
  - VOMITING [None]
